FAERS Safety Report 11421432 (Version 1)
Quarter: 2015Q3

REPORT INFORMATION
  Report Type: Spontaneous
  Country: CA (occurrence: CA)
  Receive Date: 20150826
  Receipt Date: 20150826
  Transmission Date: 20151125
  Serious: Yes (Life-Threatening, Hospitalization)
  Sender: FDA-Public Use
  Company Number: CA-BAUSCH-BL-2015-019638

PATIENT
  Age: 45 Year
  Sex: Male
  Weight: 79.4 kg

DRUGS (1)
  1. GLUMETZA [Suspect]
     Active Substance: METFORMIN HYDROCHLORIDE
     Indication: PRODUCT USED FOR UNKNOWN INDICATION
     Route: 048

REACTIONS (4)
  - Sepsis [Recovered/Resolved]
  - Lactic acidosis [Recovered/Resolved]
  - Cardiac arrest [Recovered/Resolved]
  - Metabolic acidosis [Recovered/Resolved]
